FAERS Safety Report 18108396 (Version 4)
Quarter: 2022Q3

REPORT INFORMATION
  Report Type: Report from Study
  Country: CA (occurrence: CA)
  Receive Date: 20200803
  Receipt Date: 20220829
  Transmission Date: 20221026
  Serious: Yes (Hospitalization, Other)
  Sender: FDA-Public Use
  Company Number: None

PATIENT
  Age: 38 Year
  Sex: Female

DRUGS (5)
  1. COSENTYX [Suspect]
     Active Substance: SECUKINUMAB
     Indication: Ankylosing spondylitis
     Dosage: 300 MG, QMO
     Route: 058
     Dates: start: 20180901
  2. COSENTYX [Suspect]
     Active Substance: SECUKINUMAB
     Dosage: 150 MG, QMO
     Route: 058
  3. COSENTYX [Suspect]
     Active Substance: SECUKINUMAB
     Dosage: 300 MG, QMO
     Route: 058
  4. NAPROXEN [Concomitant]
     Active Substance: NAPROXEN
     Indication: Product used for unknown indication
     Dosage: UNK UNK, BID
     Route: 065
  5. CELEBREX [Concomitant]
     Active Substance: CELECOXIB
     Indication: Product used for unknown indication
     Dosage: UNK
     Route: 065

REACTIONS (30)
  - Pyelonephritis [Unknown]
  - Symptom recurrence [Unknown]
  - Joint swelling [Unknown]
  - Discomfort [Unknown]
  - Pain [Unknown]
  - C-reactive protein increased [Unknown]
  - Spondylitis [Not Recovered/Not Resolved]
  - Nausea [Recovered/Resolved]
  - Sleep disorder [Unknown]
  - Pain in extremity [Recovering/Resolving]
  - Musculoskeletal pain [Unknown]
  - Gastric disorder [Unknown]
  - Ulcer [Unknown]
  - Anaemia [Unknown]
  - Hypoaesthesia [Unknown]
  - Vomiting [Unknown]
  - Abdominal pain upper [Unknown]
  - Decreased appetite [Unknown]
  - Feeling drunk [Unknown]
  - COVID-19 [Unknown]
  - Nasopharyngitis [Unknown]
  - Sinusitis [Unknown]
  - Musculoskeletal stiffness [Recovering/Resolving]
  - Fatigue [Recovered/Resolved]
  - Back pain [Unknown]
  - Arthralgia [Unknown]
  - Neck pain [Unknown]
  - Inflammation [Unknown]
  - Therapy partial responder [Recovering/Resolving]
  - Therapeutic product effect decreased [Unknown]

NARRATIVE: CASE EVENT DATE: 20180902
